FAERS Safety Report 7288589-9 (Version None)
Quarter: 2011Q1

REPORT INFORMATION
  Report Type: 
  Country: None (occurrence: None)
  Receive Date: 20110207
  Receipt Date: 20110207
  Transmission Date: 20110831
  Serious: Yes (Death)
  Sender: FDA-Public Use
  Company Number: None

PATIENT
  Sex: Male
  Weight: 91.6266 kg

DRUGS (3)
  1. DULOXETINE HYDROCHLORIDE [Suspect]
     Indication: DEPRESSION
     Dosage: 30 MG ONCE A DAY PO
     Route: 048
     Dates: start: 20110111, end: 20110113
  2. DULOXETINE HYDROCHLORIDE [Suspect]
     Indication: ANXIETY
     Dosage: 30 MG ONCE A DAY PO
     Route: 048
     Dates: start: 20110111, end: 20110113
  3. DULOXETINE HYDROCHLORIDE [Suspect]
     Indication: PANIC ATTACK
     Dosage: 30 MG ONCE A DAY PO
     Route: 048
     Dates: start: 20110111, end: 20110113

REACTIONS (1)
  - COMPLETED SUICIDE [None]
